FAERS Safety Report 10742013 (Version 1)
Quarter: 2015Q1

REPORT INFORMATION
  Report Type: Spontaneous
  Country: US (occurrence: None)
  Receive Date: 20150123
  Receipt Date: 20150123
  Transmission Date: 20150721
  Serious: Yes (Disabling)
  Sender: FDA-Public Use
  Company Number: None

PATIENT
  Age: 55 Year
  Sex: Female
  Weight: 76.2 kg

DRUGS (11)
  1. NEBULIZER [Concomitant]
     Active Substance: UNSPECIFIED INGREDIENT
  2. ADVAIR DISKETTE [Concomitant]
  3. SLEEP APNOEA MACHINE [Concomitant]
  4. ENERGY TABS [Concomitant]
  5. VITAMIN E [Concomitant]
     Active Substance: .ALPHA.-TOCOPHEROL
  6. VITAMIN B12 [Concomitant]
     Active Substance: CYANOCOBALAMIN
  7. SOMA [Concomitant]
     Active Substance: CARISOPRODOL
  8. ETODOLAC. [Concomitant]
     Active Substance: ETODOLAC
  9. DEPO-MEDROL [Suspect]
     Active Substance: METHYLPREDNISOLONE ACETATE
     Indication: INTERVERTEBRAL DISC DISORDER
     Dosage: 1 INJECTION
     Dates: end: 20140917
  10. GABAPENTIN. [Concomitant]
     Active Substance: GABAPENTIN
  11. VITAMIN D [Concomitant]
     Active Substance: CHOLECALCIFEROL

REACTIONS (2)
  - Back pain [None]
  - Musculoskeletal pain [None]

NARRATIVE: CASE EVENT DATE: 20080807
